FAERS Safety Report 4408404-8 (Version None)
Quarter: 2004Q3

REPORT INFORMATION
  Report Type: 
  Country: None (occurrence: None)
  Receive Date: 20040722
  Receipt Date: 20040706
  Transmission Date: 20050211
  Serious: Yes (Other)
  Sender: FDA-Public Use
  Company Number: 232279K04USA

PATIENT
  Age: 38 Year
  Sex: Female
  Weight: 73.9363 kg

DRUGS (5)
  1. REBIF [Suspect]
     Indication: MULTIPLE SCLEROSIS
     Dosage: 44 MCG, 3 IN 1 WEEKS, SUBCUTANEOUS
     Route: 058
     Dates: start: 20030801, end: 20040503
  2. MODAFINIL [Concomitant]
  3. VENLAFAXINE HCL [Concomitant]
  4. TIZANIDINE HYDROCHLORIDE [Concomitant]
  5. CLONAZEPAM [Concomitant]

REACTIONS (17)
  - AGEUSIA [None]
  - ANXIETY [None]
  - BACTERIAL INFECTION [None]
  - BLOOD POTASSIUM DECREASED [None]
  - CARDIAC DISORDER [None]
  - DECREASED APPETITE [None]
  - DEHYDRATION [None]
  - DIZZINESS [None]
  - EATING DISORDER [None]
  - ELECTROLYTE IMBALANCE [None]
  - GASTRIC INFECTION [None]
  - GASTROOESOPHAGEAL REFLUX DISEASE [None]
  - GLOSSODYNIA [None]
  - HEART RATE DECREASED [None]
  - ORAL DISCOMFORT [None]
  - VOMITING [None]
  - WEIGHT DECREASED [None]
